FAERS Safety Report 4930977-7 (Version None)
Quarter: 2006Q1

REPORT INFORMATION
  Report Type: 
  Country: None (occurrence: None)
  Receive Date: 20060227
  Receipt Date: 20060214
  Transmission Date: 20060701
  Serious: Yes (Other)
  Sender: FDA-Public Use
  Company Number: GXKR2006JP00958

PATIENT
  Age: 61 Year
  Sex: Male

DRUGS (4)
  1. RIFAMPICIN [Suspect]
     Indication: PULMONARY TUBERCULOSIS
     Dosage: 300 MG, ORAL
     Route: 048
  2. FENTANYL [Suspect]
     Indication: ANALGESIC EFFECT
     Dosage: 1.67 MG, Q72H, TRANSDERMAL; SEE IMAGE
     Route: 062
  3. ISONIAZID [Suspect]
     Indication: PULMONARY TUBERCULOSIS
     Dosage: 300 MG, QD
  4. ETHAMBUTOL HCL [Suspect]
     Indication: PULMONARY TUBERCULOSIS
     Dosage: 750 MG, QD

REACTIONS (4)
  - DRUG INTERACTION [None]
  - DRUG LEVEL DECREASED [None]
  - INADEQUATE ANALGESIA [None]
  - PAIN [None]
